FAERS Safety Report 6600545-X (Version None)
Quarter: 2010Q1

REPORT INFORMATION
  Report Type: 
  Country: None (occurrence: None)
  Receive Date: 20100224
  Receipt Date: 20100218
  Transmission Date: 20100710
  Serious: Yes (Other)
  Sender: FDA-Public Use
  Company Number: JP-MERCK-1002USA03442

PATIENT
  Age: 80 Year
  Sex: Female

DRUGS (7)
  1. JANUVIA [Suspect]
     Indication: TYPE 2 DIABETES MELLITUS
     Route: 048
     Dates: start: 20100114
  2. AMARYL [Concomitant]
     Route: 065
     Dates: end: 20100131
  3. AMARYL [Concomitant]
     Route: 065
     Dates: start: 20100201
  4. ACTOS [Concomitant]
     Route: 065
  5. RIVOTRIL [Concomitant]
     Route: 065
  6. LIVALO [Concomitant]
     Route: 065
  7. BLOPRESS [Concomitant]
     Route: 065

REACTIONS (1)
  - ALTERED STATE OF CONSCIOUSNESS [None]
